FAERS Safety Report 15637623 (Version 1)
Quarter: 2018Q4

REPORT INFORMATION
  Report Type: Spontaneous
  Country: US (occurrence: US)
  Receive Date: 20181120
  Receipt Date: 20181120
  Transmission Date: 20190205
  Serious: No
  Sender: FDA-Public Use
  Company Number: US-JNJFOC-20180542316

PATIENT
  Age: 78 Year
  Sex: Male
  Weight: 100 kg

DRUGS (12)
  1. IMBRUVICA [Concomitant]
     Active Substance: IBRUTINIB
     Indication: CHRONIC LYMPHOCYTIC LEUKAEMIA
     Route: 048
     Dates: start: 20180314, end: 20180503
  2. CLONIDINE. [Concomitant]
     Active Substance: CLONIDINE
  3. MULTIVITAMINS [Concomitant]
     Active Substance: VITAMINS
  4. IMBRUVICA [Suspect]
     Active Substance: IBRUTINIB
     Indication: NON-HODGKIN^S LYMPHOMA
     Route: 048
     Dates: start: 20180504, end: 201805
  5. GABAPENTIN. [Concomitant]
     Active Substance: GABAPENTIN
  6. ACYCLOVIR. [Concomitant]
     Active Substance: ACYCLOVIR
  7. AMLODIPINE [Concomitant]
     Active Substance: AMLODIPINE BESYLATE
  8. PRILOSEC [Concomitant]
     Active Substance: OMEPRAZOLE MAGNESIUM
  9. TAMSULOSIN [Concomitant]
     Active Substance: TAMSULOSIN
  10. IMBRUVICA [Suspect]
     Active Substance: IBRUTINIB
     Indication: NON-HODGKIN^S LYMPHOMA
     Route: 048
     Dates: start: 201805
  11. VITAMIN D3 [Concomitant]
     Active Substance: CHOLECALCIFEROL
  12. STOOL SOFTENER (DOCUSATE) [Concomitant]
     Active Substance: DOCUSATE

REACTIONS (2)
  - Product dose omission [Unknown]
  - Laboratory test abnormal [Recovered/Resolved]

NARRATIVE: CASE EVENT DATE: 201805
